FAERS Safety Report 15114652 (Version 3)
Quarter: 2018Q3

REPORT INFORMATION
  Report Type: Spontaneous
  Country: KR (occurrence: KR)
  Receive Date: 20180706
  Receipt Date: 20180926
  Transmission Date: 20181010
  Serious: Yes (Hospitalization)
  Sender: FDA-Public Use
  Company Number: KR-OTSUKA-2018_018972

PATIENT

DRUGS (4)
  1. SINEMET [Concomitant]
     Active Substance: CARBIDOPA\LEVODOPA
     Indication: PARKINSON^S DISEASE
     Dosage: 1 DF, BID
     Route: 065
     Dates: start: 20150923
  2. PLETAAL [Suspect]
     Active Substance: CILOSTAZOL
     Indication: CEREBRAL INFARCTION
     Dosage: 100 MG, BID
     Route: 048
     Dates: start: 201509, end: 20180621
  3. PLETAAL [Suspect]
     Active Substance: CILOSTAZOL
     Dosage: 100 MG, QD
     Route: 048
     Dates: end: 20180730
  4. GALVUS [Concomitant]
     Active Substance: VILDAGLIPTIN
     Indication: TYPE 2 DIABETES MELLITUS
     Dosage: 50 MG, BID
     Route: 065
     Dates: start: 20180614

REACTIONS (2)
  - Diplopia [Recovering/Resolving]
  - Infarction [Unknown]

NARRATIVE: CASE EVENT DATE: 20180616
